FAERS Safety Report 8301105-5 (Version None)
Quarter: 2012Q2

REPORT INFORMATION
  Report Type: 
  Country: None (occurrence: None)
  Receive Date: 20120420
  Receipt Date: 20120410
  Transmission Date: 20120825
  Serious: Yes (Hospitalization)
  Sender: FDA-Public Use
  Company Number: US-JNJFOC-20111206623

PATIENT
  Sex: Female
  Weight: 58.6 kg

DRUGS (40)
  1. INFLIXIMAB, RECOMBINANT [Suspect]
     Indication: COLITIS ULCERATIVE
     Route: 042
     Dates: start: 20110902, end: 20111013
  2. SCOPOLAMINE [Concomitant]
  3. SIMETHICONE [Concomitant]
  4. BENADRYL [Concomitant]
  5. 5% DEXTROSE IN 0.45% NORMAL SALINE [Concomitant]
  6. HYDROMORPHONE HCL [Concomitant]
  7. DEXTROSE+NACL+KCL [Concomitant]
  8. DEXAMETHASONE [Concomitant]
  9. PROMETHAZINE [Concomitant]
  10. MIDAZOLAM [Concomitant]
  11. SODIUM CHLORIDE [Concomitant]
  12. ISOFLURANE [Concomitant]
  13. VOLUVEN [Concomitant]
  14. DEXMEDETOMODINE HYDROCHLORIDE [Concomitant]
  15. ERTAPENEM [Concomitant]
  16. VITAMIN D [Concomitant]
  17. FLOMAX [Concomitant]
  18. TRIMETHOPRIM [Concomitant]
  19. AMOXICILLIN [Concomitant]
  20. MAGNESIUM OXIDE [Concomitant]
  21. LACTATED RINGER'S [Concomitant]
  22. TYLENOL (CAPLET) [Concomitant]
  23. ONDANSETRON [Concomitant]
  24. ATIVAN [Concomitant]
  25. NEOSTIGMINE [Concomitant]
  26. BENTYL [Concomitant]
  27. AZITHROMYCIN [Concomitant]
  28. ZYDONE [Concomitant]
  29. PHENYLEPHRINE HCL [Concomitant]
  30. HEPARIN [Suspect]
     Indication: PRODUCT USED FOR UNKNOWN INDICATION
  31. HYOSCYAMINE [Concomitant]
  32. POTASSIUM CHLORIDE [Concomitant]
  33. OXYCODONE HCL [Concomitant]
  34. LIDOCAINE [Concomitant]
  35. GLYCOPYRROLATE [Concomitant]
  36. BUPIVACAINE HCL [Concomitant]
  37. IMODIUM [Concomitant]
  38. FENTANYL [Concomitant]
  39. PROPOFOL [Concomitant]
  40. ROCURONIUM BROMIDE [Concomitant]

REACTIONS (2)
  - GASTROINTESTINAL HAEMORRHAGE [None]
  - COLITIS ULCERATIVE [None]
